FAERS Safety Report 19026751 (Version 1)
Quarter: 2021Q1

REPORT INFORMATION
  Report Type: Spontaneous
  Country: US (occurrence: US)
  Receive Date: 20210318
  Receipt Date: 20210318
  Transmission Date: 20210420
  Serious: Yes (Other)
  Sender: FDA-Public Use
  Company Number: US-AMERICAN REGENT INC-2021000636

PATIENT
  Age: 51 Year
  Sex: Female

DRUGS (1)
  1. TESTOSTERONE CYPIONATE INJECTION (0517?1830?01) [Suspect]
     Active Substance: TESTOSTERONE CYPIONATE
     Indication: TRANSGENDER HORMONAL THERAPY
     Dosage: UNK, LOW DOSE
     Route: 065

REACTIONS (1)
  - Intraductal proliferative breast lesion [Recovering/Resolving]
